FAERS Safety Report 9801144 (Version 2)
Quarter: 2014Q3

REPORT INFORMATION
  Report Type: Spontaneous
  Country: FR (occurrence: FR)
  Receive Date: 20140107
  Receipt Date: 20140717
  Transmission Date: 20150326
  Serious: Yes (Hospitalization)
  Sender: FDA-Public Use
  Company Number: FR-SA-2013SA136586

PATIENT
  Age: 57 Year
  Sex: Female

DRUGS (3)
  1. PACLITAXEL. [Concomitant]
     Active Substance: PACLITAXEL
     Indication: OVARIAN CANCER
     Dosage: CYCLES 1 TO 2
     Route: 042
     Dates: start: 20130718, end: 20130813
  2. TAXOTERE [Suspect]
     Active Substance: DOCETAXEL
     Indication: OVARIAN CANCER
     Route: 042
     Dates: start: 20130925, end: 20131108
  3. CARBOPLATIN. [Concomitant]
     Active Substance: CARBOPLATIN
     Indication: OVARIAN CANCER
     Dosage: ROUTE: ICC?CYCLES 1 TO  5
     Dates: start: 20130718, end: 20131108

REACTIONS (5)
  - Paraesthesia [Not Recovered/Not Resolved]
  - Dermatomyositis [Recovering/Resolving]
  - Paresis [Not Recovered/Not Resolved]
  - Oedema [Not Recovered/Not Resolved]
  - Erythema [Not Recovered/Not Resolved]

NARRATIVE: CASE EVENT DATE: 20131101
